FAERS Safety Report 6781238-5 (Version None)
Quarter: 2010Q2

REPORT INFORMATION
  Report Type: 
  Country: None (occurrence: None)
  Receive Date: 20100621
  Receipt Date: 20100615
  Transmission Date: 20101027
  Serious: Yes (Life-Threatening, Hospitalization, Other)
  Sender: FDA-Public Use
  Company Number: US-SANOFI-AVENTIS-2010SA035267

PATIENT
  Age: 78 Year
  Sex: Male
  Weight: 68.03 kg

DRUGS (5)
  1. PLAVIX [Suspect]
     Route: 048
     Dates: end: 20090101
  2. THEOPHYLLINE [Concomitant]
  3. VERAPAMIL [Concomitant]
  4. RAMIPRIL [Concomitant]
     Route: 048
  5. FUROSEMIDE [Concomitant]

REACTIONS (4)
  - AORTIC ANEURYSM [None]
  - CORONARY ARTERY OCCLUSION [None]
  - DYSSTASIA [None]
  - ULCER HAEMORRHAGE [None]
